FAERS Safety Report 8205708-8 (Version None)
Quarter: 2012Q1

REPORT INFORMATION
  Report Type: 
  Country: None (occurrence: None)
  Receive Date: 20120313
  Receipt Date: 20120308
  Transmission Date: 20120608
  Serious: Yes (Death, Hospitalization, Other)
  Sender: FDA-Public Use
  Company Number: US-BAXTER-2012BH004452

PATIENT
  Sex: Female

DRUGS (6)
  1. DIANEAL [Suspect]
     Indication: PERITONEAL DIALYSIS
     Route: 033
     Dates: start: 20110701, end: 20120101
  2. DIANEAL [Suspect]
     Indication: PERITONEAL DIALYSIS
     Route: 033
     Dates: start: 20110701, end: 20120101
  3. DIANEAL [Suspect]
     Route: 033
     Dates: start: 20110701, end: 20120101
  4. DIANEAL [Suspect]
     Route: 033
     Dates: start: 20110701, end: 20120101
  5. DIANEAL [Suspect]
     Route: 033
     Dates: start: 20110701, end: 20120101
  6. DIANEAL [Suspect]
     Route: 033
     Dates: start: 20110701, end: 20120101

REACTIONS (5)
  - PERITONITIS BACTERIAL [None]
  - SEPSIS [None]
  - ORAL CANDIDIASIS [None]
  - PERITONEAL DIALYSIS COMPLICATION [None]
  - FUNGAL PERITONITIS [None]
